FAERS Safety Report 8177111-0 (Version None)
Quarter: 2012Q1

REPORT INFORMATION
  Report Type: 
  Country: None (occurrence: None)
  Receive Date: 20120301
  Receipt Date: 20120227
  Transmission Date: 20120608
  Serious: Yes (Other)
  Sender: FDA-Public Use
  Company Number: US-GLAXOSMITHKLINE-A0967666A

PATIENT
  Age: 79 Year
  Sex: Male

DRUGS (17)
  1. NIACIN [Concomitant]
  2. LEXAPRO [Concomitant]
  3. FLOMAX [Concomitant]
  4. DUONEB [Concomitant]
  5. ZOCOR [Concomitant]
  6. ELIGARD [Concomitant]
  7. KLOR-CON [Concomitant]
  8. MECLIZINE [Concomitant]
  9. THEOPHYLLINE [Concomitant]
  10. PEPCID [Concomitant]
  11. COZAAR [Concomitant]
  12. TYLENOL W/ CODEINE [Concomitant]
  13. ASPIRIN [Concomitant]
  14. ULTRAM [Concomitant]
  15. LOPRESSOR [Concomitant]
  16. SEREVENT [Suspect]
     Indication: CHRONIC OBSTRUCTIVE PULMONARY DISEASE
     Dosage: 1PUFF TWICE PER DAY
     Route: 055
     Dates: start: 19970201
  17. VENTOLIN [Concomitant]

REACTIONS (7)
  - DYSPNOEA [None]
  - BRONCHITIS [None]
  - WHEEZING [None]
  - VISUAL IMPAIRMENT [None]
  - PRODUCT QUALITY ISSUE [None]
  - PNEUMONIA [None]
  - DRY EYE [None]
